FAERS Safety Report 16095901 (Version 2)
Quarter: 2019Q2

REPORT INFORMATION
  Report Type: Report from Study
  Country: US (occurrence: US)
  Receive Date: 20190320
  Receipt Date: 20190402
  Transmission Date: 20190711
  Serious: No
  Sender: FDA-Public Use
  Company Number: US-SA-2019SA038108

PATIENT
  Age: 80 Year
  Sex: Female

DRUGS (3)
  1. DUPILUMAB [Suspect]
     Active Substance: DUPILUMAB
     Indication: DERMATITIS ATOPIC
     Dosage: 600 MG, 1X
     Route: 058
     Dates: start: 20190223, end: 20190223
  2. DUPILUMAB [Suspect]
     Active Substance: DUPILUMAB
     Dosage: 300 MG, QOW
     Route: 058
     Dates: start: 2019
  3. PREDNISONE. [Suspect]
     Active Substance: PREDNISONE

REACTIONS (12)
  - Nasopharyngitis [Unknown]
  - Therapeutic response decreased [Unknown]
  - Anosmia [Unknown]
  - Blood pressure fluctuation [Unknown]
  - Pruritus [Not Recovered/Not Resolved]
  - Ageusia [Unknown]
  - Tinnitus [Unknown]
  - Sinusitis [Unknown]
  - Hypoacusis [Unknown]
  - Dysphonia [Unknown]
  - Euphoric mood [Recovered/Resolved]
  - Nasal congestion [Unknown]

NARRATIVE: CASE EVENT DATE: 20190323
